FAERS Safety Report 24864235 (Version 6)
Quarter: 2025Q4

REPORT INFORMATION
  Report Type: Spontaneous
  Country: US (occurrence: US)
  Receive Date: 20250120
  Receipt Date: 20251016
  Transmission Date: 20260119
  Serious: Yes (Hospitalization)
  Sender: IPSEN BIOPHARMACEUTICALS, INC.
  Company Number: US-IPSEN Group, Research and Development-2025-01225

PATIENT
  Age: 51 Year
  Sex: Female
  Weight: 88 kg

DRUGS (17)
  1. TAZVERIK [Suspect]
     Active Substance: TAZEMETOSTAT HYDROBROMIDE
     Indication: Neoplasm malignant
     Route: 048
     Dates: start: 20220714
  2. TAZVERIK [Suspect]
     Active Substance: TAZEMETOSTAT HYDROBROMIDE
     Indication: Off label use
  3. ACETAMINOPHEN [Concomitant]
     Active Substance: ACETAMINOPHEN
  4. AMOXICILLIN [Concomitant]
     Active Substance: AMOXICILLIN
  5. BACTRIM DS [Concomitant]
     Active Substance: SULFAMETHOXAZOLE\TRIMETHOPRIM
  6. ELIQUIS [Concomitant]
     Active Substance: APIXABAN
  7. FISH OIL [Concomitant]
     Active Substance: FISH OIL
  8. GABAPENTIN [Concomitant]
     Active Substance: GABAPENTIN
  9. KETOCONAZOLE [Concomitant]
     Active Substance: KETOCONAZOLE
  10. OMEPRAZOLE [Concomitant]
     Active Substance: OMEPRAZOLE
  11. OSELTAMIVIR [Concomitant]
     Active Substance: OSELTAMIVIR
  12. Senna  S [Concomitant]
  13. BENZONATATE [Concomitant]
     Active Substance: BENZONATATE
  14. ALBUTEROL [Concomitant]
     Active Substance: ALBUTEROL
  15. ZOFRAN [Concomitant]
     Active Substance: ONDANSETRON HYDROCHLORIDE
  16. VITAMINS NOS [Concomitant]
     Active Substance: VITAMINS
  17. OMEGA 3 [COLECALCIFEROL;DOCOSAHEXAENOIC ACID;EICOSAPENTAENOIC ACID;RET [Concomitant]

REACTIONS (9)
  - Influenza [Recovered/Resolved]
  - Hypertension [Not Recovered/Not Resolved]
  - Pyrexia [Recovered/Resolved]
  - Pain [Recovered/Resolved]
  - Cough [Recovered/Resolved]
  - Pyrexia [Recovering/Resolving]
  - Product dose omission issue [Unknown]
  - Off label use [Unknown]
  - Product dose omission issue [Unknown]

NARRATIVE: CASE EVENT DATE: 20220714
